FAERS Safety Report 7545662-5 (Version None)
Quarter: 2011Q2

REPORT INFORMATION
  Report Type: 
  Country: None (occurrence: None)
  Receive Date: 20110614
  Receipt Date: 20110609
  Transmission Date: 20111010
  Serious: Yes (Other)
  Sender: FDA-Public Use
  Company Number: US-BRISTOL-MYERS SQUIBB COMPANY-15818529

PATIENT
  Age: 66 Year
  Sex: Male

DRUGS (3)
  1. BUPROPION HCL [Concomitant]
  2. ABILIFY [Suspect]
     Dosage: AT NIGHT
  3. SERTRALINE HYDROCHLORIDE [Concomitant]

REACTIONS (1)
  - MACULAR DEGENERATION [None]
